FAERS Safety Report 24862258 (Version 2)
Quarter: 2025Q1

REPORT INFORMATION
  Report Type: Spontaneous
  Country: US (occurrence: US)
  Receive Date: 20250120
  Receipt Date: 20250211
  Transmission Date: 20250409
  Serious: Yes (Death, Other)
  Sender: AMGEN
  Company Number: US-AMGEN-USASP2025007487

PATIENT
  Sex: Male

DRUGS (1)
  1. REPATHA [Suspect]
     Active Substance: EVOLOCUMAB
     Indication: Hypercholesterolaemia
     Route: 058
     Dates: start: 2019, end: 2020

REACTIONS (3)
  - Oesophageal carcinoma [Fatal]
  - Parkinson^s disease [Fatal]
  - Therapy cessation [Unknown]

NARRATIVE: CASE EVENT DATE: 20200301
